FAERS Safety Report 20836241 (Version 3)
Quarter: 2022Q4

REPORT INFORMATION
  Report Type: Spontaneous
  Country: CA (occurrence: CA)
  Receive Date: 20220516
  Receipt Date: 20221019
  Transmission Date: 20230112
  Serious: Yes (Other)
  Sender: FDA-Public Use
  Company Number: CA-SAMSUNG BIOEPIS-SB-2022-11282

PATIENT
  Age: 60 Year
  Sex: Female
  Weight: 70 kg

DRUGS (1)
  1. INFLIXIMAB [Suspect]
     Active Substance: INFLIXIMAB
     Indication: Colitis ulcerative
     Route: 042

REACTIONS (8)
  - Blood pressure fluctuation [Unknown]
  - Condition aggravated [Unknown]
  - Abdominal pain [Unknown]
  - Haematochezia [Unknown]
  - Proctalgia [Unknown]
  - Constipation [Unknown]
  - Intentional product use issue [Unknown]
  - Off label use [Unknown]
